FAERS Safety Report 4342693-3 (Version None)
Quarter: 2004Q1

REPORT INFORMATION
  Report Type: 
  Country: None (occurrence: None)
  Receive Date: 20040213
  Receipt Date: 20031105
  Transmission Date: 20041129
  Serious: Yes (Other)
  Sender: FDA-Public Use
  Company Number: 350913

PATIENT
  Age: 55 Year
  Sex: Male

DRUGS (2)
  1. PEGASYS [Suspect]
     Indication: HEPATITIS C
     Dosage: 1ML SUBCUTANEOUS
     Route: 058
  2. COPEGUS [Suspect]
     Indication: HEPATITIS C
     Dosage: 1 ML SUBCUTANEOUS
     Route: 058

REACTIONS (2)
  - CONDITION AGGRAVATED [None]
  - LEUKOPENIA [None]
